FAERS Safety Report 5156355-6 (Version None)
Quarter: 2006Q4

REPORT INFORMATION
  Report Type: 
  Country: None (occurrence: None)
  Receive Date: 20061122
  Receipt Date: 20061113
  Transmission Date: 20070319
  Serious: Yes (Death, Other)
  Sender: FDA-Public Use
  Company Number: JP-MERCK-0611USA04197

PATIENT
  Age: 84 Year
  Sex: Female

DRUGS (5)
  1. PEPCID [Suspect]
     Indication: PROPHYLAXIS AGAINST GASTROINTESTINAL ULCER
     Route: 042
     Dates: start: 20061023, end: 20061105
  2. RADICUT [Suspect]
     Indication: CEREBRAL INFARCTION
     Route: 042
     Dates: start: 20061023, end: 20061105
  3. DESLANOSIDE [Concomitant]
     Indication: ATRIAL TACHYCARDIA
     Route: 042
     Dates: start: 20061025, end: 20061112
  4. HEPARIN SODIUM [Concomitant]
     Indication: CEREBRAL INFARCTION
     Route: 042
     Dates: start: 20061023, end: 20061031
  5. CEFAZOLIN SODIUM [Concomitant]
     Route: 042
     Dates: start: 20061023, end: 20061105

REACTIONS (13)
  - ACUTE MYOCARDIAL INFARCTION [None]
  - ASCITES [None]
  - ATELECTASIS [None]
  - BLOOD PRESSURE DECREASED [None]
  - BLOOD URINE PRESENT [None]
  - CEREBRAL INFARCTION [None]
  - DEPRESSED LEVEL OF CONSCIOUSNESS [None]
  - DISSEMINATED INTRAVASCULAR COAGULATION [None]
  - PLATELET COUNT DECREASED [None]
  - PLEURAL EFFUSION [None]
  - PYREXIA [None]
  - RESPIRATORY DISORDER [None]
  - RHABDOMYOLYSIS [None]
